FAERS Safety Report 19786874 (Version 1)
Quarter: 2021Q3

REPORT INFORMATION
  Report Type: Spontaneous
  Country: US (occurrence: US)
  Receive Date: 20210903
  Receipt Date: 20210903
  Transmission Date: 20211014
  Serious: No
  Sender: FDA-Public Use
  Company Number: US-JACOBUS PHARMACEUTICAL COMPANY, INC.-2117992

PATIENT
  Age: 39 Year
  Sex: Female

DRUGS (7)
  1. PREDNISONE. [Concomitant]
     Active Substance: PREDNISONE
  2. MESTINON [Concomitant]
     Active Substance: PYRIDOSTIGMINE BROMIDE
  3. ZOLOFT [Concomitant]
     Active Substance: SERTRALINE HYDROCHLORIDE
  4. FOLIC ACID. [Concomitant]
     Active Substance: FOLIC ACID
  5. RUZURGI [Suspect]
     Active Substance: AMIFAMPRIDINE
     Indication: CONGENITAL MYASTHENIC SYNDROME
     Route: 048
     Dates: start: 20200227
  6. AZITHROMYCIN MONOHYDRATE. [Concomitant]
     Active Substance: AZITHROMYCIN MONOHYDRATE
  7. METHOTREXATE. [Concomitant]
     Active Substance: METHOTREXATE

REACTIONS (1)
  - Bronchitis [Unknown]
